FAERS Safety Report 17855308 (Version 8)
Quarter: 2021Q3

REPORT INFORMATION
  Report Type: Spontaneous
  Country: US (occurrence: US)
  Receive Date: 20200603
  Receipt Date: 20210825
  Transmission Date: 20211014
  Serious: Yes (Other)
  Sender: FDA-Public Use
  Company Number: US-PFIZER INC-2020215373

PATIENT
  Age: 66 Year
  Sex: Female
  Weight: 69.4 kg

DRUGS (3)
  1. VALSARTAN. [Concomitant]
     Active Substance: VALSARTAN
     Indication: HYPERTENSION
     Dosage: UNK (80 AND 12.5)
  2. XELJANZ [Suspect]
     Active Substance: TOFACITINIB CITRATE
     Indication: RHEUMATOID ARTHRITIS
     Dosage: 5 MG, 2X/DAY
     Dates: start: 201902
  3. ALLEGRA [Concomitant]
     Active Substance: FEXOFENADINE HYDROCHLORIDE
     Indication: ECZEMA
     Dosage: UNK

REACTIONS (10)
  - Pain in extremity [Unknown]
  - Joint swelling [Unknown]
  - Spinal fracture [Unknown]
  - Illness [Unknown]
  - Autoimmune disorder [Unknown]
  - Therapeutic response unexpected [Unknown]
  - Pruritus [Unknown]
  - Malaise [Unknown]
  - Arthralgia [Unknown]
  - Product dose omission issue [Unknown]

NARRATIVE: CASE EVENT DATE: 20210601
